FAERS Safety Report 5004999-4 (Version None)
Quarter: 2006Q1

REPORT INFORMATION
  Report Type: 
  Country: None (occurrence: None)
  Receive Date: 20060327
  Receipt Date: 20060215
  Transmission Date: 20060701
  Serious: No
  Sender: FDA-Public Use
  Company Number: SP00781

PATIENT
  Sex: Female

DRUGS (4)
  1. XIFAXAN [Suspect]
     Indication: GASTROINTESTINAL DISORDER
     Dosage: 400MG/TID, ORAL
     Route: 048
  2. XIFAXAN [Suspect]
     Indication: OVERGROWTH BACTERIAL
     Dosage: 400MG/TID, ORAL
     Route: 048
  3. UNKNOWN [Concomitant]
     Indication: GASTROINTESTINAL DISORDER
  4. UNKNOWN [Concomitant]
     Indication: OVERGROWTH BACTERIAL

REACTIONS (1)
  - DYSTONIA [None]
